FAERS Safety Report 24412713 (Version 3)
Quarter: 2024Q4

REPORT INFORMATION
  Report Type: Spontaneous
  Country: AR (occurrence: AR)
  Receive Date: 20241008
  Receipt Date: 20241205
  Transmission Date: 20250115
  Serious: No
  Sender: PFIZER
  Company Number: AR-PFIZER INC-202400269677

PATIENT
  Age: 14 Year
  Sex: Male

DRUGS (1)
  1. GENOTROPIN [Suspect]
     Active Substance: SOMATROPIN
     Indication: Foetal growth restriction
     Dosage: 1.8 MG, 7 TIMES PER WEEK
     Dates: start: 20180815, end: 20241001

REACTIONS (2)
  - Device information output issue [Unknown]
  - Drug dose omission by device [Unknown]
